FAERS Safety Report 5648359-1 (Version None)
Quarter: 2008Q1

REPORT INFORMATION
  Report Type: 
  Country: None (occurrence: None)
  Receive Date: 20080229
  Receipt Date: 20080218
  Transmission Date: 20080703
  Serious: Yes (Hospitalization)
  Sender: FDA-Public Use
  Company Number: 107#08#2008-00859

PATIENT
  Age: 75 Year
  Sex: Male

DRUGS (1)
  1. AMIODARONE HCL [Suspect]
     Indication: DRUG USE FOR UNKNOWN INDICATION
     Dosage: 200 MG ORAL
     Route: 048

REACTIONS (5)
  - DYSPNOEA [None]
  - HYPERTHYROIDISM [None]
  - HYPOTHYROIDISM [None]
  - NO THERAPEUTIC RESPONSE [None]
  - WEIGHT DECREASED [None]
